FAERS Safety Report 6222214-0 (Version None)
Quarter: 2009Q2

REPORT INFORMATION
  Report Type: 
  Country: None (occurrence: None)
  Receive Date: 20090611
  Receipt Date: 20090608
  Transmission Date: 20091009
  Serious: Yes (Death)
  Sender: FDA-Public Use
  Company Number: PHEH2009US05342

PATIENT
  Sex: Male

DRUGS (3)
  1. GLEEVEC [Suspect]
     Indication: CHORDOMA
     Dosage: 400 MG, BID
     Route: 048
     Dates: start: 20080917, end: 20090331
  2. DEXAMETHASON ^COPHAR^ [Concomitant]
     Dosage: 4 MG, BID
     Route: 048
  3. KEPPRA [Concomitant]
     Dosage: 1500 MG, BID

REACTIONS (3)
  - ASTHENIA [None]
  - MALIGNANT NEOPLASM PROGRESSION [None]
  - MENTAL STATUS CHANGES [None]
